FAERS Safety Report 7159078-7 (Version None)
Quarter: 2010Q4

REPORT INFORMATION
  Report Type: 
  Country: None (occurrence: None)
  Receive Date: 20101214
  Receipt Date: 20101210
  Transmission Date: 20110411
  Serious: Yes (Hospitalization, Other)
  Sender: FDA-Public Use
  Company Number: US-AMGEN-USASP2010008634

PATIENT

DRUGS (9)
  1. NPLATE [Suspect]
     Indication: IDIOPATHIC THROMBOCYTOPENIC PURPURA
     Dosage: 1 A?G/KG, QWK
     Dates: start: 20101101
  2. NPLATE [Suspect]
     Dosage: 1 A?G/KG, QWK
     Dates: start: 20101101
  3. CYTOXAN [Concomitant]
  4. FLUDARABINE PHOSPHATE [Concomitant]
  5. LASIX [Concomitant]
  6. NEOSPORIN EYE [Concomitant]
  7. ALLEGRA [Concomitant]
  8. COMPAZINE [Concomitant]
  9. ALLOPURINOL [Concomitant]

REACTIONS (3)
  - CHILLS [None]
  - DRUG INEFFECTIVE [None]
  - HYPERTENSION [None]
